FAERS Safety Report 5321460-8 (Version None)
Quarter: 2007Q2

REPORT INFORMATION
  Report Type: 
  Country: None (occurrence: None)
  Receive Date: 20070510
  Receipt Date: 20070503
  Transmission Date: 20071010
  Serious: Yes (Hospitalization)
  Sender: FDA-Public Use
  Company Number: B0469313A

PATIENT
  Age: 45 Year
  Sex: Male

DRUGS (2)
  1. AUGMENTIN '125' [Suspect]
     Indication: WOUND
     Dosage: 3G PER DAY
     Route: 065
     Dates: start: 20070119, end: 20070125
  2. PARACETAMOL [Concomitant]
     Dates: start: 20070119, end: 20070124

REACTIONS (5)
  - CALCULUS BLADDER [None]
  - HEPATIC STEATOSIS [None]
  - HEPATITIS [None]
  - LIVER DISORDER [None]
  - SERUM FERRITIN INCREASED [None]
